FAERS Safety Report 14937985 (Version 5)
Quarter: 2018Q2

REPORT INFORMATION
  Report Type: Spontaneous
  Country: US (occurrence: US)
  Receive Date: 20180525
  Receipt Date: 20180615
  Transmission Date: 20180711
  Serious: Yes (Hospitalization, Disabling, Other)
  Sender: FDA-Public Use
  Company Number: US-CELGENEUS-USA-20180507078

PATIENT
  Age: 71 Year
  Sex: Male

DRUGS (1)
  1. REVLIMID [Suspect]
     Active Substance: LENALIDOMIDE
     Indication: PLASMA CELL MYELOMA
     Dosage: 25 MILLIGRAM
     Route: 048
     Dates: start: 20170918

REACTIONS (7)
  - Pulmonary hypertension [Unknown]
  - Asthenia [Unknown]
  - Osteoporotic fracture [Not Recovered/Not Resolved]
  - Peroneal nerve palsy [Recovering/Resolving]
  - Back pain [Recovering/Resolving]
  - Fall [Unknown]
  - Diastolic dysfunction [Not Recovered/Not Resolved]

NARRATIVE: CASE EVENT DATE: 20171004
